FAERS Safety Report 22315001 (Version 1)
Quarter: 2023Q2

REPORT INFORMATION
  Report Type: Spontaneous
  Country: US (occurrence: None)
  Receive Date: 20230511
  Receipt Date: 20230511
  Transmission Date: 20230722
  Serious: Yes (Disabling, Other)
  Sender: FDA-Public Use
  Company Number: None

PATIENT
  Age: 69 Year
  Sex: Female
  Weight: 72 kg

DRUGS (1)
  1. OFLOXACIN OPHTHALMIC [Suspect]
     Active Substance: OFLOXACIN
     Indication: Postoperative care
     Dosage: FREQUENCY : 3 TIMES A DAY;?
     Route: 047

REACTIONS (2)
  - Post procedural infection [None]
  - Ocular procedural complication [None]

NARRATIVE: CASE EVENT DATE: 20230202
